FAERS Safety Report 4338205-0 (Version None)
Quarter: 2004Q2

REPORT INFORMATION
  Report Type: 
  Country: None (occurrence: None)
  Receive Date: 20040407
  Receipt Date: 20040326
  Transmission Date: 20050107
  Serious: Yes (Life-Threatening)
  Sender: FDA-Public Use
  Company Number: SG-JNJFOC-20040302844

PATIENT
  Age: 63 Year
  Sex: Male
  Weight: 76 kg

DRUGS (2)
  1. ABCIXIMAB (ABCIXIMAB) INJECTION [Suspect]
     Indication: ACUTE MYOCARDIAL INFARCTION
     Dosage: 0.25 MG/KG, INTRAVENOUS; 0.05 MG/KG, INTRAVENOUS
     Route: 042
     Dates: start: 20030209, end: 20030210
  2. ABCIXIMAB (ABCIXIMAB) INJECTION [Suspect]
     Indication: ACUTE MYOCARDIAL INFARCTION
     Dosage: 0.25 MG/KG, INTRAVENOUS; 0.05 MG/KG, INTRAVENOUS
     Route: 042
     Dates: start: 20030209

REACTIONS (3)
  - CARDIAC ARREST [None]
  - CORONARY ARTERY OCCLUSION [None]
  - POST PROCEDURAL COMPLICATION [None]
